FAERS Safety Report 15650553 (Version 2)
Quarter: 2018Q4

REPORT INFORMATION
  Report Type: Report from Study
  Country: None (occurrence: IL)
  Receive Date: 20181123
  Receipt Date: 20181207
  Transmission Date: 20190205
  Serious: Yes (Hospitalization, Other)
  Sender: FDA-Public Use
  Company Number: IL-ABBVIE-18K-082-2561182-00

PATIENT
  Age: 28 Year
  Sex: Female

DRUGS (1)
  1. HUMIRA [Suspect]
     Active Substance: ADALIMUMAB
     Indication: CROHN^S DISEASE
     Route: 058
     Dates: start: 20170710, end: 20180419

REACTIONS (16)
  - Loss of consciousness [Unknown]
  - Inflammatory marker increased [Unknown]
  - Crohn^s disease [Unknown]
  - Enteritis [Unknown]
  - Abdominal pain [Unknown]
  - Drug specific antibody present [Unknown]
  - Nervousness [Unknown]
  - Hypersensitivity [Recovered/Resolved]
  - Drug effect decreased [Unknown]
  - Blister [Recovered/Resolved]
  - Drug level decreased [Unknown]
  - Anxiety [Unknown]
  - Angioedema [Recovered/Resolved]
  - Muscle spasms [Unknown]
  - Urticaria [Recovered/Resolved]
  - Diarrhoea [Unknown]

NARRATIVE: CASE EVENT DATE: 2018
